FAERS Safety Report 12175378 (Version 1)
Quarter: 2016Q1

REPORT INFORMATION
  Report Type: Spontaneous
  Country: FR (occurrence: FR)
  Receive Date: 20160314
  Receipt Date: 20160314
  Transmission Date: 20160526
  Serious: Yes (Other)
  Sender: FDA-Public Use
  Company Number: FR-SA-2016SA047652

PATIENT
  Age: 40 Year
  Sex: Male

DRUGS (2)
  1. RIFINAH [Suspect]
     Active Substance: ISONIAZID\RIFAMPIN
     Indication: ANTIBIOTIC PROPHYLAXIS
     Route: 042
     Dates: start: 201509, end: 20160108
  2. ENBREL [Suspect]
     Active Substance: ETANERCEPT
     Indication: ANKYLOSING SPONDYLITIS
     Route: 058
     Dates: start: 201510, end: 20160108

REACTIONS (1)
  - Glioblastoma [Not Recovered/Not Resolved]

NARRATIVE: CASE EVENT DATE: 20160106
